FAERS Safety Report 17926590 (Version 1)
Quarter: 2020Q2

REPORT INFORMATION
  Report Type: Report from Study
  Country: BR (occurrence: BR)
  Receive Date: 20200622
  Receipt Date: 20200622
  Transmission Date: 20200714
  Serious: Yes (Hospitalization)
  Sender: FDA-Public Use
  Company Number: PHHY2018BR123086

PATIENT
  Age: 69 Year
  Sex: Male
  Weight: 86 kg

DRUGS (3)
  1. ENTRESTO [Suspect]
     Active Substance: SACUBITRIL\VALSARTAN
     Indication: CARDIAC FAILURE
     Dosage: UNK, Q12H
     Route: 048
     Dates: start: 201710, end: 201911
  2. ENTRESTO [Suspect]
     Active Substance: SACUBITRIL\VALSARTAN
     Dosage: 1 DF(24 MG SACUBITRIL, 26 MG VALSARTAN),  BID(1 TIME IN THE MORNING AND 1 TIME FOR NIGHT)
     Route: 048
     Dates: start: 20200514
  3. ENTRESTO [Suspect]
     Active Substance: SACUBITRIL\VALSARTAN
     Dosage: 1 DF(24 MG SACUBITRIL, 26 MG VALSARTAN), UNK
     Route: 065

REACTIONS (4)
  - Malaise [Recovering/Resolving]
  - Fluid retention [Recovering/Resolving]
  - Fatigue [Not Recovered/Not Resolved]
  - Dizziness [Recovered/Resolved]

NARRATIVE: CASE EVENT DATE: 201910
